FAERS Safety Report 4370177-5 (Version None)
Quarter: 2004Q2

REPORT INFORMATION
  Report Type: 
  Country: None (occurrence: None)
  Receive Date: 20040603
  Receipt Date: 20040407
  Transmission Date: 20050107
  Serious: No
  Sender: FDA-Public Use
  Company Number: US-BRISTOL-MYERS SQUIBB COMPANY-12554689

PATIENT
  Age: 18 Year
  Sex: Male
  Weight: 73 kg

DRUGS (4)
  1. ABILIFY [Suspect]
     Indication: SCHIZOPHRENIA
     Dosage: 10 MG THEN DECREASED TO 5 MG/DAY; THEN DECR. TO 1/4 OF A 5 MG TAB 4 X/DAY
     Route: 048
     Dates: start: 20030701
  2. ABILIFY [Suspect]
     Indication: AFFECTIVE DISORDER
     Dosage: 10 MG THEN DECREASED TO 5 MG/DAY; THEN DECR. TO 1/4 OF A 5 MG TAB 4 X/DAY
     Route: 048
     Dates: start: 20030701
  3. MELATONIN [Concomitant]
  4. CONCERTA [Concomitant]

REACTIONS (2)
  - NAUSEA [None]
  - VOMITING [None]
